FAERS Safety Report 18975943 (Version 1)
Quarter: 2021Q1

REPORT INFORMATION
  Report Type: Spontaneous
  Country: US (occurrence: US)
  Receive Date: 20210305
  Receipt Date: 20210305
  Transmission Date: 20210420
  Serious: No
  Sender: FDA-Public Use
  Company Number: US-TEVA-2021-US-1878483

PATIENT
  Sex: Female

DRUGS (3)
  1. AUSTEDO [Suspect]
     Active Substance: DEUTETRABENAZINE
     Indication: TARDIVE DYSKINESIA
     Dosage: NEW TITRATING PATIENT
     Route: 048
     Dates: start: 2019
  2. SCOPOLAMINE [Interacting]
     Active Substance: SCOPOLAMINE
     Route: 065
  3. AUSTEDO [Interacting]
     Active Substance: DEUTETRABENAZINE
     Dosage: 48 MILLIGRAM DAILY;
     Route: 048

REACTIONS (2)
  - Drug interaction [Unknown]
  - Feeling abnormal [Unknown]
